FAERS Safety Report 7859976-2 (Version None)
Quarter: 2011Q4

REPORT INFORMATION
  Report Type: 
  Country: None (occurrence: None)
  Receive Date: 20111025
  Receipt Date: 20111011
  Transmission Date: 20120403
  Serious: Yes (Hospitalization, Other)
  Sender: FDA-Public Use
  Company Number: CIP11000507

PATIENT
  Age: 77 Year
  Sex: Female
  Weight: 75.3 kg

DRUGS (28)
  1. COLACE (DOCUSATE SODIUM) [Concomitant]
  2. ERGOCALCIFEROL [Concomitant]
  3. OSCAL /00108001/ (CALCIUM CARBONATE) [Concomitant]
  4. ASPIRIN [Concomitant]
  5. CITALOPRAM HYDROBROMIDE [Concomitant]
  6. OMEPRAZOLE [Concomitant]
  7. AVAPRO [Concomitant]
  8. VIACTIV /00751501/ (CALCIUM) [Concomitant]
  9. ACTONEL [Suspect]
     Indication: OSTEOPOROSIS
     Dosage: 30 MG, 1/WEEK, ORAL
     Route: 048
     Dates: start: 20020322, end: 20030128
  10. FOSAMAX [Suspect]
     Indication: OSTEOPOROSIS
     Dosage: 70 MG MONTHLY, ORAL
     Route: 048
     Dates: start: 20100101, end: 20100701
  11. ZETIA [Concomitant]
  12. PLAQUENIL /00072601/ (HYDROXYCHLOROQUINE) [Concomitant]
  13. CENTRUM SILVER /01292501/ (ASCORBIC ACID, CALCIUM, MINERALS NOS, RETIN [Concomitant]
  14. PROAIR (FLUTICASONE PROPIONATE) [Concomitant]
  15. FERROUS SULFATE TAB [Concomitant]
  16. ADVAIR HFA [Concomitant]
  17. OMEGA 3 /01334101/ (FISH OIL) [Concomitant]
  18. FLEXERIL /00428402/ (CYCLOBENZAPRINE HYDROCHLORIDE) [Concomitant]
  19. ACTONEL [Suspect]
     Indication: OSTEOPOROSIS
     Dosage: 35 MG ONCE WEEKLY, ORAL 35 MG ONCE WEEKLY, ORAL
     Route: 048
     Dates: start: 20071201, end: 20100101
  20. ACTONEL [Suspect]
     Indication: OSTEOPOROSIS
     Dosage: 35 MG ONCE WEEKLY, ORAL 35 MG ONCE WEEKLY, ORAL
     Route: 048
     Dates: start: 20030128, end: 20071201
  21. GLUCOSAMINE (GLUCOSAMINE) [Concomitant]
  22. LASIX [Concomitant]
  23. PRAVACHOL [Concomitant]
  24. VERAPAMIL [Concomitant]
  25. ZESTRIL [Concomitant]
  26. AMLODIPINE [Concomitant]
  27. COUMADIN [Concomitant]
  28. HYDROCHLOROTHIAZIDE [Concomitant]

REACTIONS (29)
  - PATHOLOGICAL FRACTURE [None]
  - ARTHRALGIA [None]
  - ANAEMIA POSTOPERATIVE [None]
  - DRUG INEFFECTIVE [None]
  - RESPIRATORY DISORDER [None]
  - FRACTURE DISPLACEMENT [None]
  - GASTROINTESTINAL HAEMORRHAGE [None]
  - RHABDOMYOLYSIS [None]
  - INCISION SITE CELLULITIS [None]
  - ACETABULUM FRACTURE [None]
  - PUBIS FRACTURE [None]
  - WEIGHT BEARING DIFFICULTY [None]
  - FALL [None]
  - BONE METABOLISM DISORDER [None]
  - POST PROCEDURAL HAEMORRHAGE [None]
  - NODAL ARRHYTHMIA [None]
  - DEVICE DISLOCATION [None]
  - JOINT SWELLING [None]
  - LOSS OF ANATOMICAL ALIGNMENT AFTER FRACTURE REDUCTION [None]
  - RENAL FAILURE [None]
  - OSTEOARTHRITIS [None]
  - STRESS ULCER [None]
  - FEMUR FRACTURE [None]
  - HUMERUS FRACTURE [None]
  - COMMINUTED FRACTURE [None]
  - BRADYCARDIA [None]
  - HYPERKALAEMIA [None]
  - CARDIAC FAILURE CONGESTIVE [None]
  - INTERNATIONAL NORMALISED RATIO INCREASED [None]
